FAERS Safety Report 4676434-7 (Version None)
Quarter: 2005Q2

REPORT INFORMATION
  Report Type: 
  Country: None (occurrence: None)
  Receive Date: 20050527
  Receipt Date: 20050222
  Transmission Date: 20051028
  Serious: Yes (Hospitalization)
  Sender: FDA-Public Use
  Company Number: US-MERCK-0502USA03184

PATIENT
  Age: 58 Year
  Sex: Male
  Weight: 91 kg

DRUGS (2)
  1. VIOXX [Suspect]
     Indication: OSTEOARTHRITIS
     Route: 048
  2. VIOXX [Suspect]
     Route: 048
     Dates: start: 20020221, end: 20030211

REACTIONS (38)
  - ABNORMAL SENSATION IN EYE [None]
  - ANXIETY [None]
  - ARACHNOID CYST [None]
  - BACK PAIN [None]
  - BLINDNESS UNILATERAL [None]
  - BLOOD PRESSURE INCREASED [None]
  - CEREBROVASCULAR ACCIDENT [None]
  - DEPRESSION [None]
  - DRUG INEFFECTIVE [None]
  - EMOTIONAL DISTRESS [None]
  - ERYTHEMA [None]
  - EYE IRRITATION [None]
  - EYE PAIN [None]
  - FIBROMYALGIA [None]
  - HEADACHE [None]
  - HEMIANOPIA [None]
  - HYPOAESTHESIA [None]
  - INTERVERTEBRAL DISC PROTRUSION [None]
  - LEUKOCYTOSIS [None]
  - MACULAR SCAR [None]
  - OEDEMA PERIPHERAL [None]
  - OPTIC ISCHAEMIC NEUROPATHY [None]
  - OPTIC NERVE DISORDER [None]
  - OSTEOARTHRITIS [None]
  - PAIN IN EXTREMITY [None]
  - PAPILLITIS [None]
  - PAPILLOEDEMA [None]
  - PARAESTHESIA [None]
  - PIGMENTATION DISORDER [None]
  - RETINAL ARTERY OCCLUSION [None]
  - RETINAL ISCHAEMIA [None]
  - RHEUMATOID ARTHRITIS [None]
  - SCIATICA [None]
  - SHOULDER PAIN [None]
  - VASCULITIS [None]
  - VISION BLURRED [None]
  - VISUAL ACUITY REDUCED [None]
  - VISUAL FIELD DEFECT [None]
